FAERS Safety Report 15022688 (Version 2)
Quarter: 2018Q2

REPORT INFORMATION
  Report Type: Spontaneous
  Country: US (occurrence: US)
  Receive Date: 20180618
  Receipt Date: 20180622
  Transmission Date: 20180711
  Serious: Yes (Other)
  Sender: FDA-Public Use
  Company Number: US-PFIZER INC-2018247230

PATIENT
  Age: 45 Year
  Sex: Female
  Weight: 93 kg

DRUGS (2)
  1. XELJANZ XR [Suspect]
     Active Substance: TOFACITINIB CITRATE
     Indication: SYSTEMIC LUPUS ERYTHEMATOSUS
  2. XELJANZ XR [Suspect]
     Active Substance: TOFACITINIB CITRATE
     Indication: FATIGUE
     Dosage: 11 MG, DAILY (11MG ONE TABLET BY MOUTH DAILY)
     Route: 048
     Dates: start: 201805, end: 20180610

REACTIONS (5)
  - Oropharyngeal candidiasis [Recovering/Resolving]
  - Oral candidiasis [Recovering/Resolving]
  - Product use in unapproved indication [Unknown]
  - Immunosuppression [Recovering/Resolving]
  - Stomatitis [Unknown]

NARRATIVE: CASE EVENT DATE: 201805
